FAERS Safety Report 4461287-2 (Version None)
Quarter: 2004Q3

REPORT INFORMATION
  Report Type: 
  Country: None (occurrence: None)
  Receive Date: 20040928
  Receipt Date: 20040917
  Transmission Date: 20050211
  Serious: Yes (Other)
  Sender: FDA-Public Use
  Company Number: CA-GLAXOSMITHKLINE-A0526621A

PATIENT
  Age: 61 Year
  Sex: Female
  Weight: 77.3 kg

DRUGS (5)
  1. FLOVENT [Suspect]
     Indication: ASTHMA
     Route: 055
     Dates: start: 20040512
  2. TIAPROFENIC ACID [Concomitant]
     Indication: ARTHRITIS
     Dosage: 350MG TWICE PER DAY
     Route: 048
     Dates: start: 19980609
  3. METOPROLOL [Concomitant]
     Indication: HYPERTENSION
     Dosage: 50MG TWICE PER DAY
     Route: 048
  4. COZAAR [Concomitant]
     Indication: HYPERTENSION
     Dosage: 50MG PER DAY
     Route: 048
     Dates: start: 19980411
  5. METHOTREXATE [Concomitant]
     Indication: ARTHRITIS
     Dosage: 10MG WEEKLY
     Route: 048
     Dates: start: 20030904

REACTIONS (4)
  - CHEST PAIN [None]
  - DRUG INEFFECTIVE [None]
  - DYSPNOEA [None]
  - PHARMACEUTICAL PRODUCT COMPLAINT [None]
